FAERS Safety Report 10663338 (Version 1)
Quarter: 2014Q4

REPORT INFORMATION
  Report Type: Spontaneous
  Country: US (occurrence: US)
  Receive Date: 20141218
  Receipt Date: 20141218
  Transmission Date: 20150529
  Serious: No
  Sender: FDA-Public Use
  Company Number: US-GLAXOSMITHKLINE-US2014GSK038258

PATIENT
  Age: 63 Year
  Sex: Female

DRUGS (2)
  1. NICOTINE UNKNOWN BRAND TRANSDERMAL PATCH [Suspect]
     Active Substance: NICOTINE
     Indication: SMOKING CESSATION THERAPY
  2. VALIUM [Suspect]
     Active Substance: DIAZEPAM
     Indication: SMOKING CESSATION THERAPY

REACTIONS (1)
  - Drug ineffective [Unknown]
